FAERS Safety Report 9258348 (Version 2)
Quarter: 2013Q3

REPORT INFORMATION
  Report Type: Spontaneous
  Country: RU (occurrence: RU)
  Receive Date: 20130426
  Receipt Date: 20130924
  Transmission Date: 20140515
  Serious: Yes (Death)
  Sender: FDA-Public Use
  Company Number: RU-BIOMARINAP-RU-2013-100715

PATIENT
  Age: 8 Year
  Sex: Male
  Weight: 20 kg

DRUGS (6)
  1. ALDURAZYME [Suspect]
     Indication: MUCOPOLYSACCHARIDOSIS I
     Dosage: UNK UNK, QW
     Route: 042
     Dates: start: 20100120, end: 20100128
  2. ALDURAZYME [Suspect]
     Dosage: UNK UNK, QW
     Route: 042
     Dates: start: 20111022, end: 2011
  3. ALDURAZYME [Suspect]
     Dosage: UNK UNK, QW
     Route: 042
     Dates: start: 201202
  4. CAPOTEN [Concomitant]
     Indication: PRODUCT USED FOR UNKNOWN INDICATION
     Dosage: UNK
     Dates: start: 201111
  5. VEROSPIRON [Concomitant]
     Indication: PRODUCT USED FOR UNKNOWN INDICATION
     Dosage: UNK
     Dates: start: 201111
  6. HYPOTHIAZID [Concomitant]
     Indication: PRODUCT USED FOR UNKNOWN INDICATION
     Dosage: UNK
     Dates: start: 201111

REACTIONS (3)
  - Circulatory collapse [Fatal]
  - Death [Unknown]
  - Oxygen saturation decreased [Unknown]
